FAERS Safety Report 5245791-5 (Version None)
Quarter: 2007Q1

REPORT INFORMATION
  Report Type: 
  Country: None (occurrence: None)
  Receive Date: 20070216
  Receipt Date: 20070202
  Transmission Date: 20070707
  Serious: Yes (Other)
  Sender: FDA-Public Use
  Company Number: 1022556-2007-00028

PATIENT
  Age: 1 Year
  Sex: Female

DRUGS (1)
  1. UNISOM [Suspect]
     Dosage: 1 TAB DAILY ORAL
     Route: 048

REACTIONS (1)
  - ACCIDENTAL EXPOSURE [None]
